FAERS Safety Report 5492038-0 (Version None)
Quarter: 2007Q4

REPORT INFORMATION
  Report Type: 
  Country: None (occurrence: None)
  Receive Date: 20071018
  Receipt Date: 20071018
  Transmission Date: 20080405
  Serious: Yes (Life-Threatening, Other)
  Sender: FDA-Public Use
  Company Number: None

PATIENT
  Age: 37 Year
  Sex: Female
  Weight: 51.7101 kg

DRUGS (11)
  1. LUPRON DEPOT-3 [Suspect]
     Indication: ENDOMETRIOSIS
     Dosage: 1 INJECTION 3 IM
     Route: 030
     Dates: start: 19960401, end: 19961231
  2. KENALOG-10 [Suspect]
     Indication: ARTHRALGIA
     Dosage: 4 INJECTION 1 INTRA-ARTICULAR
     Route: 014
     Dates: start: 20050103, end: 20050103
  3. ALLESSE [Concomitant]
  4. ACTIVELLA [Concomitant]
  5. CARTIA XT [Concomitant]
  6. PLAQUENIL [Concomitant]
  7. PLAVIX [Concomitant]
  8. ASPIRIN [Concomitant]
  9. CORTEF [Concomitant]
  10. METHOTREXATE [Concomitant]
  11. IBUPROFEN [Concomitant]

REACTIONS (12)
  - ADRENAL INSUFFICIENCY [None]
  - ADRENOCORTICAL INSUFFICIENCY ACUTE [None]
  - ARRHYTHMIA [None]
  - AUTOIMMUNE DISORDER [None]
  - CONDITION AGGRAVATED [None]
  - DYSPNOEA [None]
  - ENDOMETRIOSIS [None]
  - FATIGUE [None]
  - HYPOGLYCAEMIA [None]
  - MUSCULAR WEAKNESS [None]
  - PITUITARY TUMOUR BENIGN [None]
  - PULMONARY HYPERTENSION [None]
